FAERS Safety Report 17076849 (Version 1)
Quarter: 2019Q4

REPORT INFORMATION
  Report Type: Spontaneous
  Country: US (occurrence: US)
  Receive Date: 20191126
  Receipt Date: 20191126
  Transmission Date: 20200122
  Serious: No
  Sender: FDA-Public Use
  Company Number: US-SA-2019SA320619

PATIENT
  Age: 46 Year
  Sex: Male

DRUGS (10)
  1. HYDROXYZINUM [HYDROXYZINE] [Concomitant]
     Route: 065
  2. KETOCONAZOLE. [Concomitant]
     Active Substance: KETOCONAZOLE
  3. LOSARTAN. [Concomitant]
     Active Substance: LOSARTAN
  4. TRIAMCINOLON [TRIAMCINOLONE] [Concomitant]
  5. MYCOPHENOLATE [Concomitant]
     Active Substance: MYCOPHENOLIC ACID
  6. METOPROL XL [Concomitant]
  7. DUPIXENT [Suspect]
     Active Substance: DUPILUMAB
     Indication: DERMATITIS ATOPIC
     Dosage: QOW, 300 MG/2ML
     Route: 058
     Dates: start: 20190821
  8. OMEPRAZOLE. [Concomitant]
     Active Substance: OMEPRAZOLE
  9. SILDENAFIL. [Concomitant]
     Active Substance: SILDENAFIL
  10. AMLODIPINE [Concomitant]
     Active Substance: AMLODIPINE BESYLATE

REACTIONS (3)
  - Lacrimation increased [Not Recovered/Not Resolved]
  - Dry skin [Not Recovered/Not Resolved]
  - Skin exfoliation [Not Recovered/Not Resolved]

NARRATIVE: CASE EVENT DATE: 201910
